FAERS Safety Report 10946749 (Version 1)
Quarter: 2015Q1

REPORT INFORMATION
  Report Type: Spontaneous
  Country: JP (occurrence: JP)
  Receive Date: 20150323
  Receipt Date: 20150323
  Transmission Date: 20150721
  Serious: Yes (Hospitalization, Other)
  Sender: FDA-Public Use
  Company Number: JP-BAYER-2015-037687

PATIENT
  Sex: Male

DRUGS (2)
  1. BAYASPIRIN [Suspect]
     Active Substance: ASPIRIN
     Dosage: 100 MG, UNK
     Route: 048
  2. WARFARIN POTASSIUM [Interacting]
     Active Substance: WARFARIN POTASSIUM
     Dosage: 1 MG, UNK
     Route: 048

REACTIONS (6)
  - Cholecystitis [None]
  - Abdominal pain upper [None]
  - Hepatic haemorrhage [None]
  - Labelled drug-drug interaction medication error [None]
  - Pyrexia [None]
  - Anaemia [None]
